FAERS Safety Report 25239450 (Version 1)
Quarter: 2025Q2

REPORT INFORMATION
  Report Type: Spontaneous
  Country: JP (occurrence: JP)
  Receive Date: 20250425
  Receipt Date: 20250425
  Transmission Date: 20250717
  Serious: Yes (Death)
  Sender: BRECKENRIDGE PHARMACEUTICAL, INC.
  Company Number: JP-Breckenridge Pharmaceutical, Inc.-2175567

PATIENT
  Age: 2 Month

DRUGS (1)
  1. ZOLPIDEM [Suspect]
     Active Substance: ZOLPIDEM TARTRATE

REACTIONS (2)
  - Product administered to patient of inappropriate age [Fatal]
  - Death [Fatal]
